FAERS Safety Report 9891344 (Version 5)
Quarter: 2014Q2

REPORT INFORMATION
  Report Type: Spontaneous
  Country: IT (occurrence: None)
  Receive Date: 20140210
  Receipt Date: 20140414
  Transmission Date: 20141212
  Serious: Yes (Other)
  Sender: FDA-Public Use
  Company Number: AUR-APL-2014-01390

PATIENT
  Age: 77 Year
  Sex: Female

DRUGS (4)
  1. IRBESARTAN [Suspect]
     Indication: CARDIAC FIBRILLATION
     Dosage: (150 MG,1 D)
     Route: 048
     Dates: start: 20131210, end: 20131223
  2. ACETYLSALICYLIC ACID [Suspect]
     Indication: CARDIAC FIBRILLATION
     Dosage: (100 MG,1 D)
     Route: 048
     Dates: start: 20131210, end: 20131223
  3. PROPAFENON [Suspect]
     Indication: PALPITATIONS
     Route: 048
     Dates: start: 20131210, end: 20131223
  4. LOBIVON [Concomitant]

REACTIONS (5)
  - Atrial fibrillation [None]
  - Blood pressure increased [None]
  - Drug ineffective [None]
  - Heart rate increased [None]
  - Product quality issue [None]
